FAERS Safety Report 9703723 (Version 1)
Quarter: 2013Q4

REPORT INFORMATION
  Report Type: Spontaneous
  Country: US (occurrence: US)
  Receive Date: 20131122
  Receipt Date: 20131122
  Transmission Date: 20140711
  Serious: Yes (Other)
  Sender: FDA-Public Use
  Company Number: US-ELI_LILLY_AND_COMPANY-US201311003755

PATIENT
  Age: 54 Year
  Sex: 0
  Weight: 117.91 kg

DRUGS (3)
  1. CYMBALTA [Suspect]
     Indication: PRODUCT USED FOR UNKNOWN INDICATION
     Dosage: 600 MG, QD
     Route: 065
     Dates: start: 2013
  2. CHANTIX [Suspect]
     Indication: SMOKING CESSATION THERAPY
     Dosage: 0.5 MG, BID
     Route: 048
     Dates: start: 201309
  3. CHANTIX [Suspect]
     Dosage: 1 MG, BID
     Route: 048

REACTIONS (8)
  - Vasculitis [Unknown]
  - B-cell lymphoma [Unknown]
  - Rheumatoid arthritis [Unknown]
  - Nephropathy [Unknown]
  - Blood creatinine increased [Unknown]
  - Tremor [Unknown]
  - Nightmare [Unknown]
  - Prescribed overdose [Unknown]
